FAERS Safety Report 9571855 (Version 3)
Quarter: 2014Q3

REPORT INFORMATION
  Report Type: Spontaneous
  Country: US (occurrence: US)
  Receive Date: 20131001
  Receipt Date: 20140714
  Transmission Date: 20150326
  Serious: Yes (Death)
  Sender: FDA-Public Use
  Company Number: US-B.I. PHARMACEUTICALS,INC./RIDGEFIELD-2013-BI-30567BP

PATIENT
  Age: 60 Year
  Sex: Female

DRUGS (4)
  1. POTASSIUM [Concomitant]
     Active Substance: POTASSIUM
     Route: 065
  2. SPIRIVA [Suspect]
     Active Substance: TIOTROPIUM BROMIDE MONOHYDRATE
     Indication: EMPHYSEMA
     Dosage: 18 MCG
     Route: 055
     Dates: start: 201306
  3. LORITAB [Concomitant]
     Indication: PAIN
     Route: 065
  4. VITAMINS [Concomitant]
     Active Substance: VITAMINS
     Route: 065

REACTIONS (3)
  - Upper limb fracture [Unknown]
  - Weight decreased [Unknown]
  - Neoplasm malignant [Fatal]

NARRATIVE: CASE EVENT DATE: 201308
